FAERS Safety Report 4515599-4 (Version None)
Quarter: 2004Q4

REPORT INFORMATION
  Report Type: 
  Country: None (occurrence: None)
  Receive Date: 20041126
  Receipt Date: 20041115
  Transmission Date: 20050328
  Serious: Yes (Death, Hospitalization)
  Sender: FDA-Public Use
  Company Number: 2004073953

PATIENT
  Age: 46 Year
  Sex: Male
  Weight: 103 kg

DRUGS (5)
  1. VIAGRA [Suspect]
     Indication: ERECTILE DYSFUNCTION
     Dosage: 100 MG, ORAL
     Route: 048
     Dates: start: 19980101
  2. DRUG, UNSPECIFIED (DRUG UNSPECIFIED) [Concomitant]
  3. LISINOPRIL DIHYDRATE (LISINOPRIL DIHYDRATE) [Concomitant]
  4. VALSARTAN (VALSARTAN) [Concomitant]
  5. TRAMADOL HCL [Concomitant]

REACTIONS (5)
  - BACK PAIN [None]
  - CEREBRAL HAEMORRHAGE [None]
  - HAEMORRHAGE [None]
  - HEADACHE [None]
  - OSTEOARTHRITIS [None]
